FAERS Safety Report 9037910 (Version 1)
Quarter: 2013Q1

REPORT INFORMATION
  Report Type: Spontaneous
  Country: ES (occurrence: ES)
  Receive Date: 20130129
  Receipt Date: 20130129
  Transmission Date: 20140127
  Serious: Yes (Other)
  Sender: FDA-Public Use
  Company Number: ES-JNJFOC-20130105112

PATIENT
  Age: 59 Year
  Sex: Male

DRUGS (8)
  1. SIMPONI [Suspect]
     Indication: PSORIATIC ARTHROPATHY
     Route: 058
     Dates: start: 20120622
  2. LOCAL ANESTHESIA, NOS [Suspect]
     Indication: CATARACT OPERATION
     Route: 065
     Dates: start: 20121108
  3. ALL OTHER THERAPEUTICS [Suspect]
     Indication: CATARACT
     Route: 065
     Dates: start: 20121108
  4. PRITORPLUS [Concomitant]
     Indication: HYPERTENSION
     Dosage: 25 MG/80 MG, HALF A TABLET DAILY
     Route: 065
  5. ARAVA [Concomitant]
     Route: 065
  6. TARDYFERON [Concomitant]
     Route: 065
  7. OMEPRAZOLE [Concomitant]
     Route: 065
  8. OPTOVITE B12 [Concomitant]
     Route: 065

REACTIONS (2)
  - Urticaria [Recovering/Resolving]
  - Cataract [Unknown]
